FAERS Safety Report 5585968-2 (Version None)
Quarter: 2007Q4

REPORT INFORMATION
  Report Type: 
  Country: None (occurrence: None)
  Receive Date: 20071203
  Receipt Date: 20070525
  Transmission Date: 20080405
  Serious: Yes (Life-Threatening, Hospitalization, Disabling, Other)
  Sender: FDA-Public Use
  Company Number: 2007029363

PATIENT
  Age: 31 Year
  Sex: Female

DRUGS (4)
  1. ZYVOX [Suspect]
     Indication: ENDOCARDITIS
     Dosage: 1200 MG (600 MG,1 IN 12 HR),INTRAVENOUS
     Route: 042
     Dates: end: 20070403
  2. CUBICIN [Concomitant]
  3. COREG [Concomitant]
  4. SEROQUEL [Concomitant]

REACTIONS (4)
  - ALANINE AMINOTRANSFERASE INCREASED [None]
  - ASPARTATE AMINOTRANSFERASE INCREASED [None]
  - CARBON DIOXIDE ABNORMAL [None]
  - LACTIC ACIDOSIS [None]
